FAERS Safety Report 15373275 (Version 1)
Quarter: 2018Q3

REPORT INFORMATION
  Report Type: Spontaneous
  Country: US (occurrence: US)
  Receive Date: 20180912
  Receipt Date: 20180912
  Transmission Date: 20181010
  Serious: No
  Sender: FDA-Public Use
  Company Number: US-009507513-1809USA000124

PATIENT
  Age: 38 Year
  Sex: Female
  Weight: 61.22 kg

DRUGS (1)
  1. NEXPLANON [Suspect]
     Active Substance: ETONOGESTREL
     Dosage: 68MG, 1 IMPLANT
     Dates: start: 2011

REACTIONS (3)
  - No adverse event [Unknown]
  - Incorrect drug administration duration [Unknown]
  - Complication associated with device [Unknown]
